FAERS Safety Report 24367379 (Version 1)
Quarter: 2024Q3

REPORT INFORMATION
  Report Type: Spontaneous
  Country: US (occurrence: US)
  Receive Date: 20240926
  Receipt Date: 20240926
  Transmission Date: 20241016
  Serious: No
  Sender: AMGEN
  Company Number: US-AMGEN-USASP2024190230

PATIENT
  Sex: Female

DRUGS (1)
  1. REPATHA [Suspect]
     Active Substance: EVOLOCUMAB
     Indication: Product used for unknown indication
     Dosage: UNK, Q2WK
     Route: 058
     Dates: start: 2024

REACTIONS (5)
  - Hyperhidrosis [Recovering/Resolving]
  - SARS-CoV-2 test positive [Recovering/Resolving]
  - Product preparation error [Unknown]
  - Wrong technique in product usage process [Unknown]
  - Cough [Recovering/Resolving]

NARRATIVE: CASE EVENT DATE: 20240916
